FAERS Safety Report 6373444-9 (Version None)
Quarter: 2009Q3

REPORT INFORMATION
  Report Type: 
  Country: None (occurrence: None)
  Receive Date: 20090924
  Receipt Date: 20090316
  Transmission Date: 20100115
  Serious: Yes (Other)
  Sender: FDA-Public Use
  Company Number: US-ASTRAZENECA-2009UW06783

PATIENT
  Sex: Male

DRUGS (4)
  1. SEROQUEL [Suspect]
     Route: 048
     Dates: start: 20090101, end: 20090101
  2. SEROQUEL [Suspect]
     Route: 048
     Dates: start: 20090101, end: 20090101
  3. TIKOSYN [Concomitant]
  4. SOTALOL HYDROCHLORIDE [Concomitant]

REACTIONS (1)
  - ASTHENIA [None]
